FAERS Safety Report 4284603-3 (Version None)
Quarter: 2004Q1

REPORT INFORMATION
  Report Type: 
  Country: None (occurrence: None)
  Receive Date: 20040130
  Receipt Date: 20040109
  Transmission Date: 20041129
  Serious: Yes (Hospitalization)
  Sender: FDA-Public Use
  Company Number: FR_040103388

PATIENT
  Age: 78 Year
  Sex: Male

DRUGS (1)
  1. ZYPREXA [Suspect]
     Dosage: 10 MG/DAY
     Dates: start: 20030201

REACTIONS (2)
  - CONDITION AGGRAVATED [None]
  - HYPOTHERMIA [None]
